FAERS Safety Report 19670334 (Version 1)
Quarter: 2021Q3

REPORT INFORMATION
  Report Type: Spontaneous
  Country: US (occurrence: US)
  Receive Date: 20210806
  Receipt Date: 20210806
  Transmission Date: 20211014
  Serious: Yes (Other)
  Sender: FDA-Public Use
  Company Number: US-SAOL THERAPEUTICS-2020SAO00440

PATIENT
  Sex: Female

DRUGS (2)
  1. LIORESAL [Suspect]
     Active Substance: BACLOFEN
     Dosage: 1075.5 ?G, \DAY (AS OF OCT?2020)
     Route: 037
     Dates: start: 2020
  2. LIORESAL [Suspect]
     Active Substance: BACLOFEN
     Indication: MUSCLE SPASTICITY
     Dosage: UNK ?G, \DAY
     Route: 037

REACTIONS (8)
  - Vomiting [Unknown]
  - Decreased appetite [Unknown]
  - Urine output decreased [Unknown]
  - Therapy non-responder [Not Recovered/Not Resolved]
  - Speech disorder [Unknown]
  - Fall [Unknown]
  - Implant site pain [Unknown]
  - Somnolence [Unknown]

NARRATIVE: CASE EVENT DATE: 2020
